FAERS Safety Report 9236903 (Version 2)
Quarter: 2013Q2

REPORT INFORMATION
  Report Type: Spontaneous
  Country: US (occurrence: US)
  Receive Date: 20130417
  Receipt Date: 20130423
  Transmission Date: 20140414
  Serious: Yes (Other)
  Sender: FDA-Public Use
  Company Number: US-PFIZER INC-2013119773

PATIENT
  Age: 34 Year
  Sex: Male
  Weight: 62.59 kg

DRUGS (14)
  1. PROTONIX [Suspect]
     Indication: GASTROOESOPHAGEAL REFLUX DISEASE
     Dosage: 40 MG, 2X/DAY
     Route: 048
     Dates: start: 2006
  2. PROTONIX [Suspect]
     Dosage: 40 MG, 2X/DAY
     Route: 048
  3. REGLAN [Concomitant]
     Dosage: 10 MG, 1X/DAY
  4. ERYTHROMYCIN [Concomitant]
     Dosage: 6.25 ML, 1X/DAY
  5. CELLCEPT [Concomitant]
     Dosage: 100 MG, 2X/DAY
  6. PROGRAF [Concomitant]
     Dosage: TWO CAPSULES OF 1MG IN MORNING+1MG AT NIGHT
  7. VALCYTE [Concomitant]
     Dosage: 100 MG, 1X/DAY
  8. PREDNISONE [Concomitant]
     Dosage: 5 MG, 1X/DAY
  9. METOPROLOL [Concomitant]
     Dosage: 25 MG, 1X/DAY
  10. PHENERGAN [Concomitant]
     Dosage: 25 MG, AS NEEDED
  11. ZOFRAN [Concomitant]
     Dosage: 40 MG, AS NEEDED
  12. SCOPOLAMINE [Concomitant]
     Dosage: 1 DF, EVERY 3 DAYS
     Route: 062
  13. FENTANYL [Concomitant]
     Indication: PAIN
     Dosage: 50 MG, EVERY 48 HOURS
     Route: 062
  14. BACTRIM [Concomitant]
     Dosage: 40 MG, 1X/DAY

REACTIONS (3)
  - Diabetes mellitus [Unknown]
  - Immunosuppression [Unknown]
  - Renal failure [Unknown]
